FAERS Safety Report 5841882-6 (Version None)
Quarter: 2008Q3

REPORT INFORMATION
  Report Type: 
  Country: None (occurrence: None)
  Receive Date: 20080812
  Receipt Date: 20080804
  Transmission Date: 20090109
  Serious: Yes (Other)
  Sender: FDA-Public Use
  Company Number: US-AMGEN-US287098

PATIENT
  Sex: Male
  Weight: 71.7 kg

DRUGS (17)
  1. ARANESP [Suspect]
     Indication: RENAL FAILURE CHRONIC
     Route: 065
     Dates: start: 20070725, end: 20080612
  2. CELLCEPT [Suspect]
     Route: 065
     Dates: start: 20010313, end: 20080610
  3. BACTRIM [Suspect]
     Route: 048
     Dates: start: 20010313, end: 20080610
  4. VITAMINS NOS [Concomitant]
     Route: 065
  5. GENGRAF [Concomitant]
     Route: 065
     Dates: start: 20010313
  6. PREDNISONE TAB [Concomitant]
     Route: 065
     Dates: start: 20010313
  7. ATENOLOL [Concomitant]
     Route: 065
     Dates: start: 20011002
  8. CARDURA [Concomitant]
     Route: 065
     Dates: start: 20070912
  9. CLONIDINE [Concomitant]
     Route: 065
     Dates: start: 20080116
  10. COZAAR [Concomitant]
     Route: 065
     Dates: start: 20060818
  11. ZOCOR [Concomitant]
     Route: 065
     Dates: start: 20070314
  12. CALCITRIOL [Concomitant]
     Route: 065
     Dates: start: 20080311
  13. OSCAL D [Concomitant]
     Route: 065
     Dates: start: 20021112
  14. PROTONIX [Concomitant]
     Route: 065
     Dates: start: 20070223
  15. SODIUM BICARBONATE [Concomitant]
     Route: 048
     Dates: start: 20070523
  16. TUMS [Concomitant]
     Route: 065
     Dates: start: 20071204
  17. ISTIN [Concomitant]
     Route: 065
     Dates: start: 20040325

REACTIONS (4)
  - ANAEMIA [None]
  - APLASIA PURE RED CELL [None]
  - GLOMERULONEPHRITIS MEMBRANOPROLIFERATIVE [None]
  - WEIGHT DECREASED [None]
